FAERS Safety Report 13443067 (Version 1)
Quarter: 2017Q2

REPORT INFORMATION
  Report Type: Spontaneous
  Country: TR (occurrence: TR)
  Receive Date: 20170414
  Receipt Date: 20170414
  Transmission Date: 20170830
  Serious: Yes (Other)
  Sender: FDA-Public Use
  Company Number: TR-UCBSA-2017014197

PATIENT
  Age: 30 Year
  Sex: Female

DRUGS (5)
  1. LACOSAMIDE. [Suspect]
     Active Substance: LACOSAMIDE
     Indication: EPILEPSY
     Dosage: 200 MG, 2X/DAY (BID)
     Route: 048
     Dates: start: 20160111
  2. PREGABALIN. [Suspect]
     Active Substance: PREGABALIN
     Indication: EPILEPSY
     Dosage: 150 MG, 2X/DAY (BID)
     Route: 048
     Dates: start: 20140818
  3. LEVETIRACETAM. [Suspect]
     Active Substance: LEVETIRACETAM
     Indication: EPILEPSY
     Dosage: 1000 MG, 3X/DAY (TID)
     Route: 048
  4. CARBAMAZEPINE. [Suspect]
     Active Substance: CARBAMAZEPINE
     Indication: EPILEPSY
     Dosage: 400 MG, 3X/DAY (TID)
     Route: 048
     Dates: start: 2009
  5. PAXERA [Suspect]
     Active Substance: PAROXETINE HYDROCHLORIDE
     Indication: PERSONALITY DISORDER
     Dosage: 200 MG, 2X/DAY (BID)
     Route: 048
     Dates: start: 2015, end: 20170213

REACTIONS (4)
  - Pregnancy [Unknown]
  - Pregnancy on contraceptive [Recovered/Resolved]
  - Maternal exposure timing unspecified [None]
  - Abortion induced [Unknown]

NARRATIVE: CASE EVENT DATE: 20161224
